FAERS Safety Report 20185432 (Version 1)
Quarter: 2021Q4

REPORT INFORMATION
  Report Type: Report from Study
  Country: BR (occurrence: BR)
  Receive Date: 20211215
  Receipt Date: 20211215
  Transmission Date: 20220303
  Serious: Yes (Other)
  Sender: FDA-Public Use
  Company Number: BR-JNJFOC-20211221803

PATIENT
  Sex: Female
  Weight: 50 kg

DRUGS (1)
  1. REMICADE [Suspect]
     Active Substance: INFLIXIMAB
     Indication: Immunoglobulin G4 related disease
     Route: 042
     Dates: end: 2021

REACTIONS (3)
  - Chemotherapy [Unknown]
  - Product use in unapproved indication [Unknown]
  - Off label use [Unknown]
